FAERS Safety Report 6526624-3 (Version None)
Quarter: 2010Q1

REPORT INFORMATION
  Report Type: 
  Country: None (occurrence: None)
  Receive Date: 20100105
  Receipt Date: 20091221
  Transmission Date: 20100710
  Serious: Yes (Hospitalization)
  Sender: FDA-Public Use
  Company Number: US-ROCHE-677062

PATIENT
  Sex: Female
  Weight: 68 kg

DRUGS (6)
  1. TOCILIZUMAB [Suspect]
     Indication: RHEUMATOID ARTHRITIS
     Dosage: FORM: INFUSION,
     Route: 042
     Dates: start: 20080728, end: 20090209
  2. METHOTREXATE [Suspect]
     Indication: RHEUMATOID ARTHRITIS
     Route: 065
     Dates: start: 20090112
  3. MELOXICAM [Concomitant]
     Dates: start: 20070122
  4. PREDNISONE [Concomitant]
     Dosage: FREQUENCY: QD
     Dates: start: 20070122
  5. FOLIC ACID [Concomitant]
     Dates: start: 20070122
  6. COUMADIN [Concomitant]
     Dates: start: 20090101

REACTIONS (1)
  - MALIGNANT PLEURAL EFFUSION [None]
